FAERS Safety Report 21936578 (Version 3)
Quarter: 2023Q1

REPORT INFORMATION
  Report Type: Spontaneous
  Country: US (occurrence: US)
  Receive Date: 20230201
  Receipt Date: 20230317
  Transmission Date: 20230418
  Serious: Yes (Hospitalization)
  Sender: FDA-Public Use
  Company Number: US-PFIZER INC-202300039505

PATIENT
  Age: 86 Year
  Sex: Male
  Weight: 55.79 kg

DRUGS (23)
  1. VYNDAMAX [Suspect]
     Active Substance: TAFAMIDIS
     Indication: Cardiac amyloidosis
     Dosage: 61 MG, 1X/DAY
     Route: 048
     Dates: start: 202208
  2. VYNDAMAX [Suspect]
     Active Substance: TAFAMIDIS
     Dosage: 61 MG, DAILY
     Route: 048
     Dates: start: 20220211, end: 20230117
  3. VYNDAMAX [Suspect]
     Active Substance: TAFAMIDIS
     Dosage: 61 MG, 1X/DAY
     Route: 048
     Dates: start: 20220210
  4. ASPIRIN [Concomitant]
     Active Substance: ASPIRIN
     Indication: Headache
     Dosage: 81 MG, DAILY
     Route: 048
     Dates: start: 20230106, end: 20230205
  5. ASPIRIN [Concomitant]
     Active Substance: ASPIRIN
     Indication: Cerebrovascular accident prophylaxis
  6. ECOTRIN [Concomitant]
     Active Substance: ASPIRIN
     Indication: Cerebrovascular accident prophylaxis
     Dosage: UNK
     Route: 048
     Dates: start: 2017
  7. TYLENOL [Concomitant]
     Active Substance: ACETAMINOPHEN
     Indication: Headache
     Dosage: TAKE 2 TABLETS EVERY 6 (SIX) HOURS AS NEEDED
     Route: 048
     Dates: start: 20230105, end: 20230115
  8. TYLENOL [Concomitant]
     Active Substance: ACETAMINOPHEN
     Indication: Pyrexia
  9. ZOVIRAX [Concomitant]
     Active Substance: ACYCLOVIR
     Indication: Herpes virus infection
     Dosage: 400 MG 4 TIMES A DAY FOR 5 DAYS WHEN NEEDED
     Route: 048
     Dates: start: 1980
  10. XANAX [Concomitant]
     Active Substance: ALPRAZOLAM
     Indication: Anxiety
     Dosage: 0.25 MG DAILY, AS NEEDED
     Route: 048
     Dates: start: 1990
  11. XANAX [Concomitant]
     Active Substance: ALPRAZOLAM
     Dosage: 0.25 MG DAILY, AS NEEDED
     Route: 048
     Dates: start: 20221118
  12. LIPITOR [Concomitant]
     Active Substance: ATORVASTATIN CALCIUM
     Indication: Blood cholesterol increased
     Dosage: EVERY EVENING
     Route: 048
     Dates: start: 2010
  13. LIPITOR [Concomitant]
     Active Substance: ATORVASTATIN CALCIUM
     Dosage: EVERY EVENING
     Route: 048
     Dates: start: 20230105, end: 20230201
  14. LEVSIN [Concomitant]
     Active Substance: HYOSCYAMINE SULFATE
     Indication: Muscle spasms
     Dosage: 0.125 MG EVERY 6 HOURS AS NEEDED
     Route: 060
     Dates: start: 20220531, end: 20230217
  15. LEVSIN [Concomitant]
     Active Substance: HYOSCYAMINE SULFATE
     Indication: Diarrhoea
  16. MAGNESIUM OXIDE [Concomitant]
     Active Substance: MAGNESIUM OXIDE
     Indication: Muscle spasms
     Dosage: 400 MG
     Route: 048
     Dates: start: 2018
  17. ANTIVERT [Concomitant]
     Active Substance: MECLIZINE HYDROCHLORIDE
     Indication: Dizziness
     Dosage: 25 MG, 3X/DAY AS NEEDED
     Route: 048
     Dates: start: 20230105, end: 20230215
  18. LYRICA [Concomitant]
     Active Substance: PREGABALIN
     Indication: Neuralgia
     Dosage: 75 MG, 3X/DAY
     Route: 048
     Dates: start: 2018
  19. LYRICA [Concomitant]
     Active Substance: PREGABALIN
     Dosage: 75 MG, 3X/DAY
     Route: 048
     Dates: start: 20221010
  20. SENOKOT-S [Concomitant]
     Active Substance: DOCUSATE SODIUM\SENNOSIDES
     Dosage: 8.6-50 MG, TAKE 1 TABLET TWO TIMES A DAY
     Route: 048
     Dates: start: 20230105, end: 20230205
  21. VIAGRA [Concomitant]
     Active Substance: SILDENAFIL CITRATE
     Dosage: 100 MG
  22. FLEXERIL [Concomitant]
     Active Substance: CYCLOBENZAPRINE HYDROCHLORIDE
     Indication: Muscle spasms
     Dosage: TAKE 1 TABLET (5 MG TOTAL) 3 TIMES A DAY AS NEEDED
     Route: 048
  23. THERAGRAN [VITAMINS NOS] [Concomitant]
     Dosage: 1 DF, DAILY
     Route: 048

REACTIONS (16)
  - Vertigo positional [Recovering/Resolving]
  - Face injury [Recovered/Resolved]
  - Skin laceration [Unknown]
  - Periorbital haemorrhage [Unknown]
  - Disorientation [Unknown]
  - Fall [Unknown]
  - Neck pain [Not Recovered/Not Resolved]
  - Condition aggravated [Not Recovered/Not Resolved]
  - Decubitus ulcer [Unknown]
  - Memory impairment [Unknown]
  - Musculoskeletal stiffness [Unknown]
  - Tenderness [Unknown]
  - Gait disturbance [Unknown]
  - Weight decreased [Unknown]
  - Eating disorder [Unknown]
  - Product dose omission issue [Unknown]

NARRATIVE: CASE EVENT DATE: 20230101
